FAERS Safety Report 25536458 (Version 2)
Quarter: 2025Q3

REPORT INFORMATION
  Report Type: Report from Study
  Country: JP (occurrence: JP)
  Receive Date: 20250709
  Receipt Date: 20250730
  Transmission Date: 20251021
  Serious: Yes (Death, Other)
  Sender: BRISTOL-MYERS SQUIBB COMPANY
  Company Number: JP-BRISTOL-MYERS SQUIBB COMPANY-2025-096379

PATIENT
  Age: 58 Year
  Sex: Male
  Weight: 60.7 kg

DRUGS (3)
  1. BREYANZI [Suspect]
     Active Substance: LISOCABTAGENE MARALEUCEL
     Indication: Diffuse large B-cell lymphoma recurrent
     Route: 041
     Dates: start: 20221031, end: 20221031
  2. CYCLOPHOSPHAMIDE [Concomitant]
     Active Substance: CYCLOPHOSPHAMIDE
     Indication: Diffuse large B-cell lymphoma recurrent
     Dates: start: 20221026
  3. FLUDARABINE [Concomitant]
     Active Substance: FLUDARABINE PHOSPHATE
     Indication: Diffuse large B-cell lymphoma recurrent
     Dates: start: 20221026

REACTIONS (12)
  - Immune effector cell-associated neurotoxicity syndrome [Not Recovered/Not Resolved]
  - Cytokine release syndrome [Recovered/Resolved]
  - Cytopenia [Unknown]
  - Cytomegalovirus infection [Recovered/Resolved]
  - Hepatic function abnormal [Unknown]
  - Alanine aminotransferase increased [Unknown]
  - Aspartate aminotransferase increased [Unknown]
  - Sepsis [Fatal]
  - Blood alkaline phosphatase increased [Unknown]
  - Blood bilirubin increased [Unknown]
  - Haematuria [Unknown]
  - Escherichia infection [Fatal]

NARRATIVE: CASE EVENT DATE: 20221031
